FAERS Safety Report 7943852-0 (Version None)
Quarter: 2011Q4

REPORT INFORMATION
  Report Type: 
  Country: None (occurrence: None)
  Receive Date: 20111128
  Receipt Date: 20110824
  Transmission Date: 20120403
  Serious: Yes (Hospitalization)
  Sender: FDA-Public Use
  Company Number: US-ROCHE-GNE299703

PATIENT
  Sex: Female
  Weight: 101.7 kg

DRUGS (10)
  1. ASMANEX TWISTHALER [Concomitant]
     Indication: ASTHMA
     Dosage: UNK
  2. CEFTIN [Concomitant]
     Indication: SINUSITIS
     Dosage: UNK
  3. PULMICORT [Concomitant]
     Indication: ASTHMA
     Dosage: UNK
     Dates: start: 20100401
  4. MULTI-VITAMINS [Concomitant]
     Indication: PREGNANCY
     Dosage: 1 UNK,QD
     Route: 048
     Dates: start: 20100301
  5. BENADRYL [Concomitant]
     Indication: HYPERSENSITIVITY
     Dosage: 1 UNK,PRN
     Route: 048
  6. OMALIZUMAB [Suspect]
     Indication: ASTHMA
     Dosage: 225 MG,Q2W
     Route: 058
     Dates: start: 20050713
  7. VENTOLIN [Concomitant]
     Indication: ASTHMA
     Dosage: UNK
     Dates: start: 19960101
  8. ALLEGRA-D 12 HOUR [Concomitant]
     Indication: HYPERSENSITIVITY
     Dosage: 1 UNK,UNK
     Route: 048
     Dates: start: 20080101
  9. PREDNISONE TAB [Concomitant]
     Indication: ASTHMA
     Dosage: UNK
  10. SIMVASTATIN [Concomitant]
     Indication: HYPERLIPIDAEMIA
     Dosage: UNK

REACTIONS (2)
  - MATERNAL EXPOSURE DURING PREGNANCY [None]
  - GESTATIONAL HYPERTENSION [None]
